FAERS Safety Report 8958578 (Version 1)
Quarter: 2012Q4

REPORT INFORMATION
  Report Type: Spontaneous
  Country: US (occurrence: None)
  Receive Date: 20121203
  Receipt Date: 20121203
  Transmission Date: 20130627
  Serious: Yes (Other)
  Sender: FDA-Public Use
  Company Number: JPI-P-026455

PATIENT
  Age: 59 Year
  Sex: Female
  Weight: 79.38 kg

DRUGS (11)
  1. XYREM (500 MILLIGRAM/MILLILITERS, SOLUTION) (SODIUM OXYBATE) [Suspect]
     Dosage: 4.5 gm (2.25 gm, 2 in 1 D) , Oral
     Route: 048
     Dates: start: 20120619, end: 2012
  2. METHADONE (UNKNOWN) [Concomitant]
  3. CLONAZEPAM [Concomitant]
  4. CLOPIDOGREL BISULFATE (UNKNOWN) [Concomitant]
  5. TRIAMTERENE/ HYDROCHLOROTHIAZIDE (UNKNOWN) [Concomitant]
  6. PROPRANOLOL (UNKNOWN) [Concomitant]
  7. AMLODIPINE (UNKNOWN) [Concomitant]
  8. ATORVASTATIN (UNKNOWN) [Concomitant]
  9. ATORVASTATIN (UNKNOWN) [Concomitant]
  10. DULOXETINE HYDROCHLORIDE (UNKNOWN) [Concomitant]
  11. ESOMEPRAZOLE MAGNESIUM (UNKNOWN) [Concomitant]

REACTIONS (6)
  - Atrial fibrillation [None]
  - Anxiety [None]
  - Hot flush [None]
  - Feeling cold [None]
  - Dyspnoea [None]
  - Euphoric mood [None]
